FAERS Safety Report 7030521-7 (Version None)
Quarter: 2010Q4

REPORT INFORMATION
  Report Type: 
  Country: None (occurrence: None)
  Receive Date: 20101006
  Receipt Date: 20100922
  Transmission Date: 20110411
  Serious: Yes (Life-Threatening, Other)
  Sender: FDA-Public Use
  Company Number: JP-ROCHE-709673

PATIENT
  Sex: Male
  Weight: 75 kg

DRUGS (11)
  1. AVASTIN [Suspect]
     Indication: RECTAL CANCER METASTATIC
     Dosage: NOTE: DOSAGE IS UNCERTAIN.
     Route: 041
     Dates: start: 20080723, end: 20090527
  2. IRINOTECAN HYDROCHLORIDE [Suspect]
     Indication: RECTAL CANCER METASTATIC
     Dosage: NOTE: DOSAGE IS UNCERTAIN.
     Route: 041
     Dates: start: 20080723, end: 20090527
  3. LEUCOVORIN CALCIUM [Concomitant]
     Dosage: NOTE: DOSAGE IS UNCERTAIN.
     Route: 041
     Dates: start: 20080723, end: 20090527
  4. FLUOROURACIL [Concomitant]
     Indication: RECTAL CANCER METASTATIC
     Route: 040
     Dates: start: 20080623, end: 20090527
  5. FLUOROURACIL [Concomitant]
     Route: 041
     Dates: start: 20080723, end: 20090527
  6. NAUZELIN [Concomitant]
     Dosage: DOSAGE IS UNCERTAIN
     Route: 048
  7. LOXONIN [Concomitant]
     Dosage: DOSAGE IS UNCERTAIN
     Route: 048
  8. CRAVIT [Concomitant]
     Dosage: DOSE IS UNCERTAIN
     Route: 048
  9. BUSCOPAN [Concomitant]
     Dosage: DOSE IS UNCERTAIN
     Route: 048
  10. MAGNESIUM OXIDE [Concomitant]
     Dosage: DOSAGE IS UNCERTAIN
     Route: 048
  11. POSTERISAN [Concomitant]
     Dosage: DOSAGE IS UNCERTAIN
     Route: 061

REACTIONS (7)
  - HEPATIC FAILURE [None]
  - HYPERBILIRUBINAEMIA [None]
  - IMPAIRED HEALING [None]
  - LIVER DISORDER [None]
  - PYREXIA [None]
  - STAPHYLOCOCCAL INFECTION [None]
  - WHITE BLOOD CELL COUNT DECREASED [None]
